FAERS Safety Report 9366463 (Version 1)
Quarter: 2013Q2

REPORT INFORMATION
  Report Type: Spontaneous
  Country: DE (occurrence: DE)
  Receive Date: 20130625
  Receipt Date: 20130625
  Transmission Date: 20140414
  Serious: Yes (Hospitalization)
  Sender: FDA-Public Use
  Company Number: DE-EISAI INC-E2007-01216-SPO-DE

PATIENT
  Age: 6 Year
  Sex: Female
  Weight: 18 kg

DRUGS (5)
  1. FYCOMPA (PERAMPANEL) [Suspect]
     Indication: EARLY INFANTILE EPILEPTIC ENCEPHALOPATHY WITH BURST-SUPPRESSION
     Route: 048
     Dates: end: 20121117
  2. FYCOMPA (PERAMPANEL) [Interacting]
     Route: 048
     Dates: start: 20121118, end: 20121128
  3. FYCOMPA (PERAMPANEL) [Interacting]
     Route: 048
  4. TROBALT [Interacting]
     Indication: EARLY INFANTILE EPILEPTIC ENCEPHALOPATHY WITH BURST-SUPPRESSION
     Dosage: 400 MG DAILY
     Route: 048
     Dates: start: 201205, end: 201211
  5. VALPROATE [Concomitant]
     Indication: EARLY INFANTILE EPILEPTIC ENCEPHALOPATHY WITH BURST-SUPPRESSION
     Dosage: 1000 MG DAILY
     Route: 048
     Dates: start: 2010

REACTIONS (3)
  - Thirst [Recovered/Resolved]
  - Gait disturbance [Recovered/Resolved]
  - Drug interaction [Recovered/Resolved]
